FAERS Safety Report 5120731-8 (Version None)
Quarter: 2006Q4

REPORT INFORMATION
  Report Type: 
  Country: None (occurrence: None)
  Receive Date: 20061004
  Receipt Date: 20060928
  Transmission Date: 20070319
  Serious: Yes (Hospitalization)
  Sender: FDA-Public Use
  Company Number: US-BRISTOL-MYERS SQUIBB COMPANY-13524087

PATIENT
  Age: 75 Year
  Sex: Male
  Weight: 81 kg

DRUGS (19)
  1. PACLITAXEL [Suspect]
     Indication: NON-SMALL CELL LUNG CANCER
     Route: 042
     Dates: start: 20060405, end: 20060405
  2. CARBOPLATIN [Suspect]
     Indication: NON-SMALL CELL LUNG CANCER
     Route: 042
     Dates: start: 20060405, end: 20060405
  3. TELCYTA [Suspect]
     Indication: NON-SMALL CELL LUNG CANCER
     Route: 042
     Dates: start: 20060405, end: 20060405
  4. ISOSORBIDE [Concomitant]
  5. MECLOFENAMATE SODIUM [Concomitant]
     Dates: start: 20060319
  6. ASPIRIN [Concomitant]
  7. ALLOPURINOL [Concomitant]
     Dates: start: 20050506
  8. LISINOPRIL [Concomitant]
     Dates: start: 20050902
  9. LOVASTATIN [Concomitant]
     Dates: start: 20010701
  10. NITROGLYCERIN [Concomitant]
  11. CALCIUM + VITAMIN D [Concomitant]
     Dates: start: 20060126
  12. REGLAN [Concomitant]
     Dates: start: 20060208
  13. EPOGEN [Concomitant]
     Dates: start: 20060317
  14. ALOXI [Concomitant]
     Dates: start: 20060317
  15. FERROUS SULFATE TAB [Concomitant]
     Dates: start: 20060316
  16. COLACE [Concomitant]
     Dates: start: 20060322
  17. SENOKOT [Concomitant]
     Dates: start: 20060327
  18. MULTIVITAMIN [Concomitant]
     Dates: start: 20060330
  19. AMBIEN [Concomitant]
     Dates: start: 20060410

REACTIONS (1)
  - NON-CARDIAC CHEST PAIN [None]
